FAERS Safety Report 5683589-4 (Version None)
Quarter: 2008Q1

REPORT INFORMATION
  Report Type: 
  Country: None (occurrence: None)
  Receive Date: 20080326
  Receipt Date: 20070907
  Transmission Date: 20080703
  Serious: Yes (Death, Hospitalization)
  Sender: FDA-Public Use
  Company Number: 6037835

PATIENT
  Age: 75 Year
  Sex: Male

DRUGS (6)
  1. GLUCOPHAGE [Suspect]
     Indication: TYPE 2 DIABETES MELLITUS
     Dosage: 3000 MG (1000 MG, 3 IN 1 D) ORAL
     Route: 048
     Dates: start: 20060313
  2. AMAREL (4 MG, TABLET) (GLIMEPIRIDE) [Concomitant]
  3. PLAVIX [Concomitant]
  4. KARDEGIC (75 MG, POWDER FOR ORAL SOLUTION) (ACETYLSALICYLATE LYSINE) [Concomitant]
  5. RAMIPRIL [Concomitant]
  6. ZOLOFT [Concomitant]

REACTIONS (11)
  - ANOREXIA [None]
  - ASTHENIA [None]
  - CARDIO-RESPIRATORY ARREST [None]
  - DIARRHOEA [None]
  - DRUG LEVEL INCREASED [None]
  - ELECTROCARDIOGRAM QRS COMPLEX PROLONGED [None]
  - HYPERKALAEMIA [None]
  - LACTIC ACIDOSIS [None]
  - RENAL FAILURE ACUTE [None]
  - VENTRICULAR TACHYCARDIA [None]
  - VOMITING [None]
